FAERS Safety Report 18421420 (Version 1)
Quarter: 2020Q4

REPORT INFORMATION
  Report Type: Spontaneous
  Country: US (occurrence: US)
  Receive Date: 20201023
  Receipt Date: 20201023
  Transmission Date: 20210114
  Serious: No
  Sender: FDA-Public Use
  Company Number: US-GALDERMA-US2020028784

PATIENT
  Age: 26 Year
  Sex: Female

DRUGS (3)
  1. PROACTIV MD BALANCING TONER [Concomitant]
     Active Substance: COSMETICS
     Indication: ACNE
     Route: 061
     Dates: start: 2019, end: 20200506
  2. PROACTIV MD ADAPALENE ACNE TREATMENT [Suspect]
     Active Substance: ADAPALENE
     Indication: ACNE
     Dosage: 0.1%
     Route: 061
     Dates: start: 2019, end: 20200506
  3. PROACTIV DETOX HYDROGEL FACE MASK [Concomitant]
     Indication: ACNE
     Route: 061
     Dates: start: 2019, end: 20200506

REACTIONS (2)
  - Skin irritation [Recovering/Resolving]
  - Acne cystic [Recovering/Resolving]

NARRATIVE: CASE EVENT DATE: 20200306
